FAERS Safety Report 8444142-2 (Version None)
Quarter: 2012Q2

REPORT INFORMATION
  Report Type: 
  Country: None (occurrence: None)
  Receive Date: 20120323
  Receipt Date: 20110801
  Transmission Date: 20120825
  Serious: Yes (Other)
  Sender: FDA-Public Use
  Company Number: 163-21880-11053386

PATIENT
  Age: 76 Year
  Sex: Female
  Weight: 72.5755 kg

DRUGS (11)
  1. NORVASC [Concomitant]
  2. LENALIDOMIDE [Suspect]
     Indication: MULTIPLE MYELOMA
     Dosage: 25 MG, DAILY, PO 15 MG, 1 IN 1 D, PO
     Route: 048
     Dates: end: 20110708
  3. LENALIDOMIDE [Suspect]
     Indication: MULTIPLE MYELOMA
     Dosage: 25 MG, DAILY, PO 15 MG, 1 IN 1 D, PO
     Route: 048
     Dates: start: 20091231
  4. CALCIUM (CALCIUM) (UNKNOWN) [Concomitant]
  5. WELCHOL (COLESEVELAM HYDROCHLORIDE) (UNKNOWN) [Concomitant]
  6. ASPIRIN [Concomitant]
  7. ZETIA (EZETIMIBE) (UNKNOWN) [Concomitant]
  8. DEXAMETHASONE [Concomitant]
  9. ACCURETIC (GEZOR) (UNKNOWN) [Concomitant]
  10. TYLENOL (PARACETAMOL) (UNKNOWN) [Concomitant]
  11. QUINAPRIL (QUINAPRIL) (UNKNOWN) [Concomitant]

REACTIONS (1)
  - CATARACT [None]
